FAERS Safety Report 11508553 (Version 1)
Quarter: 2015Q3

REPORT INFORMATION
  Report Type: Spontaneous
  Country: US (occurrence: US)
  Receive Date: 20150903
  Receipt Date: 20150903
  Transmission Date: 20151125
  Serious: No
  Sender: FDA-Public Use
  Company Number: US-ELI_LILLY_AND_COMPANY-US201001000209

PATIENT
  Age: 62 Year
  Sex: Female

DRUGS (9)
  1. HUMALOG MIX75/25 [Suspect]
     Active Substance: INSULIN LISPRO
     Indication: DIABETES MELLITUS
     Dosage: 32 U, EACH MORNING
     Dates: start: 2008
  2. CAPTOPRIL. [Concomitant]
     Active Substance: CAPTOPRIL
  3. SIMVASTATIN. [Concomitant]
     Active Substance: SIMVASTATIN
  4. LEVOTHYROXINE. [Concomitant]
     Active Substance: LEVOTHYROXINE
  5. HUMALOG MIX75/25 [Suspect]
     Active Substance: INSULIN LISPRO
     Dosage: 30 U, EACH EVENING
     Dates: start: 2008
  6. GLUCOVANCE [Concomitant]
     Active Substance: GLYBURIDE\METFORMIN HYDROCHLORIDE
  7. TENORMIN [Concomitant]
     Active Substance: ATENOLOL
  8. LASIX [Concomitant]
     Active Substance: FUROSEMIDE
  9. K-DUR [Concomitant]
     Active Substance: POTASSIUM CHLORIDE

REACTIONS (1)
  - Incorrect dose administered [Recovered/Resolved]

NARRATIVE: CASE EVENT DATE: 200912
